FAERS Safety Report 18176623 (Version 3)
Quarter: 2020Q4

REPORT INFORMATION
  Report Type: Other
  Country: US (occurrence: US)
  Receive Date: 20200820
  Receipt Date: 20201125
  Transmission Date: 20210113
  Serious: No
  Sender: FDA-Public Use
  Company Number: US-AMAG PHARMACEUTICALS, INC.-AMAG202002612

PATIENT
  Age: 25 Year
  Sex: Female

DRUGS (2)
  1. MAKENA [Suspect]
     Active Substance: HYDROXYPROGESTERONE CAPROATE
     Indication: PREMATURE DELIVERY
     Dosage: 250MG/ML, WEEKLY
     Route: 058
     Dates: start: 20200625
  2. MAKENA [Suspect]
     Active Substance: HYDROXYPROGESTERONE CAPROATE
     Indication: PREMATURE DELIVERY

REACTIONS (9)
  - Injection site pain [Recovered/Resolved]
  - Inappropriate schedule of product administration [Unknown]
  - Headache [Recovered/Resolved]
  - Injection site rash [Recovered/Resolved]
  - Injection site erythema [Recovered/Resolved]
  - Nausea [Recovered/Resolved]
  - Illness [Recovered/Resolved]
  - Injection site urticaria [Recovered/Resolved]
  - Dyspnoea [Recovered/Resolved]

NARRATIVE: CASE EVENT DATE: 2020
